FAERS Safety Report 18329477 (Version 1)
Quarter: 2020Q3

REPORT INFORMATION
  Report Type: Spontaneous
  Country: DE (occurrence: DE)
  Receive Date: 20200930
  Receipt Date: 20200930
  Transmission Date: 20201103
  Serious: Yes (Hospitalization)
  Sender: FDA-Public Use
  Company Number: DE-TEVA-2020-DE-1832077

PATIENT
  Age: 83 Year
  Sex: Male

DRUGS (11)
  1. XIPAMIDE [Suspect]
     Active Substance: XIPAMIDE
     Dosage: 10 MILLIGRAM DAILY;  1?0?0?0
  2. SALBUTAMOL [Concomitant]
     Active Substance: ALBUTEROL
     Dosage: IF NECESSARY
  3. DIGITOXIN [Concomitant]
     Active Substance: DIGITOXIN
     Dosage: .07 MILLIGRAM DAILY; 1?0?0?0
  4. METOPROLOL. [Suspect]
     Active Substance: METOPROLOL
     Dosage: 47.5 MG, 0.5?0?1?0
  5. EZETIMIB [Concomitant]
     Active Substance: EZETIMIBE
     Dosage: 10 MILLIGRAM DAILY; 1?0?0?0
  6. PHENPROCOUMON [Concomitant]
     Active Substance: PHENPROCOUMON
     Dosage: 3 MG, ACCORDING TO INR
  7. SPIRIVA RESPIMAT 2,5MIKROGRAMM [Concomitant]
     Dosage: 2.5 MICROGRAM DAILY; 1?0?0?0
  8. TORASEMID [Suspect]
     Active Substance: TORSEMIDE
     Dosage: 10 MILLIGRAM DAILY;  1?0?0?0
  9. CRATAEGUTT NOVO 450MG [Concomitant]
     Dosage: 900 MILLIGRAM DAILY;  1?0?1?0
  10. ATORVASTATIN [Concomitant]
     Active Substance: ATORVASTATIN
     Dosage: 40 MILLIGRAM DAILY;  0?0?1?0
  11. ALLOPURINOL. [Concomitant]
     Active Substance: ALLOPURINOL
     Dosage: 1 DOSAGE FORMS DAILY; 0?0?0?1

REACTIONS (9)
  - Chest pain [Unknown]
  - Hypokalaemia [Unknown]
  - Hypotension [Unknown]
  - Dehydration [Unknown]
  - Electrolyte imbalance [Unknown]
  - Weight decreased [Unknown]
  - Dyspnoea [Unknown]
  - Dizziness [Unknown]
  - Wheezing [Unknown]
